FAERS Safety Report 14431657 (Version 2)
Quarter: 2018Q1

REPORT INFORMATION
  Report Type: Spontaneous
  Country: RU (occurrence: RU)
  Receive Date: 20180124
  Receipt Date: 20180327
  Transmission Date: 20180509
  Serious: Yes (Other)
  Sender: FDA-Public Use
  Company Number: RU-BAYER-2018-008725

PATIENT
  Age: 36 Year
  Sex: Female

DRUGS (3)
  1. ADEMPAS [Suspect]
     Active Substance: RIOCIGUAT
     Indication: PULMONARY HYPERTENSION
     Dosage: 1 MG, UNK
     Dates: start: 20171211
  2. TANAKAN [Concomitant]
     Active Substance: GINKGO
     Dosage: 1 DF, TID
  3. CARDIOMAGNYL [Concomitant]
     Active Substance: ASPIRIN\MAGNESIUM HYDROXIDE
     Dosage: 75 MG, UNK

REACTIONS (2)
  - Retinal artery occlusion [Recovering/Resolving]
  - Visual impairment [Recovering/Resolving]

NARRATIVE: CASE EVENT DATE: 20180104
